FAERS Safety Report 9352614 (Version 3)
Quarter: 2013Q3

REPORT INFORMATION
  Report Type: Spontaneous
  Country: US (occurrence: US)
  Receive Date: 20130618
  Receipt Date: 20130805
  Transmission Date: 20140515
  Serious: Yes (Hospitalization, Other)
  Sender: FDA-Public Use
  Company Number: US-009507513-1306USA006064

PATIENT
  Age: 56 Year
  Sex: 0

DRUGS (2)
  1. JANUVIA [Suspect]
     Indication: DIABETES MELLITUS
     Dosage: 100 MG, QD
     Route: 048
     Dates: start: 20120911, end: 201305
  2. JANUVIA [Suspect]
     Dosage: UNK
     Route: 048

REACTIONS (3)
  - Pancreatic mass [Recovered/Resolved]
  - Pancreatic carcinoma [Not Recovered/Not Resolved]
  - Pancreatic lesion excision [Recovered/Resolved]
